FAERS Safety Report 8213703-8 (Version None)
Quarter: 2012Q1

REPORT INFORMATION
  Report Type: 
  Country: None (occurrence: None)
  Receive Date: 20120315
  Receipt Date: 20120306
  Transmission Date: 20120608
  Serious: Yes (Hospitalization, Other)
  Sender: FDA-Public Use
  Company Number: US-ASTRAZENECA-2011SE36136

PATIENT
  Age: 62 Year
  Sex: Female

DRUGS (3)
  1. AZMACORT [Concomitant]
  2. PULMICORT FLEXHALER [Suspect]
     Indication: EMPHYSEMA
     Dosage: 1 PUFF BID
     Route: 055
  3. PULMICORT FLEXHALER [Suspect]
     Indication: CHRONIC OBSTRUCTIVE PULMONARY DISEASE
     Dosage: 1 PUFF BID
     Route: 055

REACTIONS (4)
  - ACTIVITIES OF DAILY LIVING IMPAIRED [None]
  - CHRONIC OBSTRUCTIVE PULMONARY DISEASE [None]
  - DRUG INEFFECTIVE [None]
  - EMPHYSEMA [None]
